FAERS Safety Report 9524975 (Version 2)
Quarter: 2013Q3

REPORT INFORMATION
  Report Type: Spontaneous
  Country: FR (occurrence: FR)
  Receive Date: 20130916
  Receipt Date: 20130930
  Transmission Date: 20140515
  Serious: Yes (Hospitalization)
  Sender: FDA-Public Use
  Company Number: FR-009507513-1309FRA003416

PATIENT
  Age: 70 Year
  Sex: Male

DRUGS (6)
  1. EMEND [Suspect]
     Indication: PROPHYLAXIS OF NAUSEA AND VOMITING
     Dosage: 125 MG, ONCE
     Route: 048
     Dates: start: 20130621, end: 20130621
  2. POLARAMINE [Suspect]
     Indication: PREMEDICATION
     Dosage: 5 MG, ONCE
     Route: 042
     Dates: start: 20130621, end: 20130621
  3. KABI PACLITAXEL [Suspect]
     Indication: NEOPLASM MALIGNANT
     Dosage: 158 MG, ONCE
     Route: 042
     Dates: start: 20130621, end: 20130621
  4. DEXAMETHASONE MYLAN [Suspect]
     Indication: PREMEDICATION
     Dosage: 8 MG, ONCE
     Route: 042
     Dates: start: 20130621, end: 20130621
  5. AZANTAC [Suspect]
     Indication: PREMEDICATION
     Dosage: 50 MG, ONCE
     Route: 042
     Dates: start: 20130621, end: 20130621
  6. ZOPHREN (ONDANSETRON) [Suspect]
     Indication: PROPHYLAXIS OF NAUSEA AND VOMITING
     Dosage: 8 MG, ONCE
     Route: 042
     Dates: start: 20130621, end: 20130621

REACTIONS (2)
  - Sense of oppression [Recovered/Resolved]
  - Erythema [Recovered/Resolved]
